FAERS Safety Report 18025117 (Version 18)
Quarter: 2025Q4

REPORT INFORMATION
  Report Type: Report from Study
  Country: US (occurrence: US)
  Receive Date: 20200715
  Receipt Date: 20251222
  Transmission Date: 20260118
  Serious: Yes (Other)
  Sender: PFIZER
  Company Number: US-PFIZER INC-2020269396

PATIENT
  Age: 68 Year
  Sex: Female
  Weight: 67.13 kg

DRUGS (23)
  1. IBRANCE [Suspect]
     Active Substance: PALBOCICLIB
     Indication: Breast cancer metastatic
     Dosage: 100 MG, CYCLIC (ONCE DAILY THREE WEEKS AND ONE WEEK BREAK)
     Route: 048
     Dates: start: 201808
  2. IBRANCE [Suspect]
     Active Substance: PALBOCICLIB
     Indication: Invasive ductal breast carcinoma
     Dosage: 100 MG, CYCLIC (ONCE DAILY THREE WEEKS AND ONE WEEK BREAK)
     Route: 048
  3. IBRANCE [Suspect]
     Active Substance: PALBOCICLIB
     Dosage: 100 MG, CYCLIC (ONCE DAILY THREE WEEKS AND ONE WEEK BREAK)
     Route: 048
  4. IBRANCE [Suspect]
     Active Substance: PALBOCICLIB
     Dosage: 100 MG, CYCLIC (ONCE DAILY FOR 3 WEEKS, THEN OFF FOR 1 WEEK)
     Route: 048
     Dates: start: 201808
  5. IBRANCE [Suspect]
     Active Substance: PALBOCICLIB
     Dosage: 3 WEEKS- 1 WEEK BREAK
     Route: 048
  6. IBRANCE [Suspect]
     Active Substance: PALBOCICLIB
     Dosage: 100 MG, CYCLIC (ONCE A DAY FOR THREE WEEKS THEN ONE WEEK BREAK)
     Route: 048
  7. IBRANCE [Suspect]
     Active Substance: PALBOCICLIB
     Dosage: 100MG; TAKES ONE A DAY FOR 3 WEEKS AND THEN HAS A ONE WEEK BREAK
     Route: 048
  8. IBRANCE [Suspect]
     Active Substance: PALBOCICLIB
     Dosage: 100 MG, CYCLIC (ONE TAB DAILY FOR 21 CONSECUTIVE DAYS THEN STOP FOR 7 CONSECUTIVE DAYS)
     Route: 048
  9. IBRANCE [Suspect]
     Active Substance: PALBOCICLIB
     Dosage: 100 MG
  10. FASLODEX [Concomitant]
     Active Substance: FULVESTRANT
     Dosage: IN EACH BUTT AND IT MONTHLY
     Dates: start: 2018
  11. FASLODEX [Concomitant]
     Active Substance: FULVESTRANT
     Dosage: (250 X 2) IN BUTT EVERY MONTH
  12. CEPHALEXIN [Concomitant]
     Active Substance: CEPHALEXIN
     Indication: Urinary tract infection
     Dosage: HAS BEEN TAKING IT EVERY DAY
  13. GABAPENTIN [Concomitant]
     Active Substance: GABAPENTIN
     Indication: Pain
     Dosage: 100 MG;  TAKES GABAPENTIN FOR PAIN WHENEVER THE PAIN IS SEVERE
  14. GABAPENTIN [Concomitant]
     Active Substance: GABAPENTIN
     Indication: Neuralgia
  15. DICLOFENAC SODIUM [Concomitant]
     Active Substance: DICLOFENAC SODIUM
     Indication: Pain in extremity
     Dosage: TAKING IT AT LEAST FOR 6 MONTHS
     Route: 061
  16. CALCIUM\VITAMIN D [Concomitant]
     Active Substance: CALCIUM\VITAMIN D
     Dosage: 600 MG
  17. VITAMIN B COMPLEX [Concomitant]
     Active Substance: CYANOCOBALAMIN\DEXPANTHENOL\NIACINAMIDE\PYRIDOXINE HYDROCHLORIDE\RIBOFLAVIN 5^-PHOSPHATE SODIUM\THIA
     Dosage: UNK
  18. MAGNESIUM [Concomitant]
     Active Substance: MAGNESIUM
     Dosage: 400 MG, DAILY
  19. MAGNESIUM [Concomitant]
     Active Substance: MAGNESIUM
     Dosage: MAGNESIUM EVERY DAY TO 1 DAY OFF
  20. ROSUVASTATIN [Concomitant]
     Active Substance: ROSUVASTATIN
     Indication: Blood cholesterol abnormal
     Dosage: 0.5 MG
  21. PROLIA [Concomitant]
     Active Substance: DENOSUMAB
     Dosage: EVERY 6 MOS
  22. NEURONTIN [Concomitant]
     Active Substance: GABAPENTIN
     Indication: Pain in extremity
     Dosage: 100 MG, AS NEEDED, ONE CAPSULE BY MOUTH DAILY AS NEEDED
     Route: 048
  23. NEURONTIN [Concomitant]
     Active Substance: GABAPENTIN
     Indication: Neuralgia

REACTIONS (23)
  - Glaucoma [Unknown]
  - Loss of consciousness [Recovering/Resolving]
  - Pain in extremity [Recovered/Resolved]
  - Cataract [Unknown]
  - Renal impairment [Not Recovered/Not Resolved]
  - Alopecia [Not Recovered/Not Resolved]
  - Urinary tract infection [Unknown]
  - Diarrhoea [Recovered/Resolved]
  - Bacterial test positive [Unknown]
  - Blood electrolytes abnormal [Unknown]
  - Constipation [Recovering/Resolving]
  - Fall [Recovering/Resolving]
  - Flatulence [Recovering/Resolving]
  - Fluid retention [Unknown]
  - Hyperhidrosis [Unknown]
  - Hypotension [Recovering/Resolving]
  - Pain of skin [Recovering/Resolving]
  - Peripheral swelling [Not Recovered/Not Resolved]
  - Trichorrhexis [Not Recovered/Not Resolved]
  - Tumour marker increased [Unknown]
  - Anal incontinence [Unknown]
  - Blood potassium decreased [Unknown]
  - Renal disorder [Unknown]

NARRATIVE: CASE EVENT DATE: 20180101
